FAERS Safety Report 8708926 (Version 2)
Quarter: 2013Q4

REPORT INFORMATION
  Report Type: Spontaneous
  Country: US (occurrence: US)
  Receive Date: 20120806
  Receipt Date: 20131031
  Transmission Date: 20140711
  Serious: No
  Sender: FDA-Public Use
  Company Number: US-009507513-2012SP027473

PATIENT
  Age: 62 Year
  Sex: Female
  Weight: 44.45 kg

DRUGS (7)
  1. MIRALAX [Suspect]
     Indication: COLONOSCOPY
     Dosage: UNK UNK, UNKNOWN
     Route: 048
     Dates: start: 20120424, end: 20120425
  2. MIRALAX [Suspect]
     Indication: MEDICAL OBSERVATION
  3. CALCIUM (UNSPECIFIED) (+) VITAMIN D (UNSPECIFIED) [Concomitant]
     Indication: PRODUCT USED FOR UNKNOWN INDICATION
  4. ONE-A-DAY ESSENTIAL VITAMINS [Concomitant]
     Indication: PRODUCT USED FOR UNKNOWN INDICATION
     Dosage: UNK, UNKNOWN
  5. IRON (UNSPECIFIED) [Concomitant]
     Indication: PRODUCT USED FOR UNKNOWN INDICATION
  6. XANTHOPHYLL [Concomitant]
     Indication: PRODUCT USED FOR UNKNOWN INDICATION
  7. KELP [Concomitant]
     Indication: PRODUCT USED FOR UNKNOWN INDICATION
     Dosage: UNK, UNKNOWN

REACTIONS (6)
  - Nausea [Recovered/Resolved]
  - Drug effect increased [Unknown]
  - Wrong technique in drug usage process [Unknown]
  - Off label use [Unknown]
  - Prescribed overdose [Recovered/Resolved]
  - Blood electrolytes decreased [Recovered/Resolved]
